FAERS Safety Report 9616724 (Version 4)
Quarter: 2014Q1

REPORT INFORMATION
  Report Type: Spontaneous
  Country: IT (occurrence: IT)
  Receive Date: 20131011
  Receipt Date: 20140127
  Transmission Date: 20141002
  Serious: Yes (Life-Threatening)
  Sender: FDA-Public Use
  Company Number: IT-SA-2013SA098587

PATIENT
  Age: 28 Year
  Sex: Female
  Weight: 60 kg

DRUGS (2)
  1. CLEXANE T [Suspect]
     Indication: THROMBOSIS
     Route: 058
     Dates: start: 20130601, end: 20130909
  2. COUMADIN [Concomitant]
     Indication: PULMONARY EMBOLISM
     Dates: start: 20110901, end: 20130601

REACTIONS (4)
  - Pain in extremity [Recovering/Resolving]
  - Drug ineffective [Unknown]
  - Exposure during pregnancy [Unknown]
  - Thrombosis [Recovering/Resolving]
